FAERS Safety Report 7793785-8 (Version None)
Quarter: 2011Q4

REPORT INFORMATION
  Report Type: 
  Country: None (occurrence: None)
  Receive Date: 20111003
  Receipt Date: 20110920
  Transmission Date: 20120403
  Serious: Yes (Other)
  Sender: FDA-Public Use
  Company Number: PHHY2011BR74483

PATIENT
  Age: 45 Year
  Sex: Female

DRUGS (2)
  1. DIOVAN [Suspect]
     Indication: BLOOD PRESSURE INCREASED
     Dosage: 160 MG, UNK
  2. GALVUS MET [Suspect]
     Indication: BLOOD GLUCOSE INCREASED
     Dosage: 1 DF, (1000 MG METF AND 50MG VILD)

REACTIONS (2)
  - DIZZINESS [None]
  - BLOOD PRESSURE DECREASED [None]
